FAERS Safety Report 17067708 (Version 2)
Quarter: 2019Q4

REPORT INFORMATION
  Report Type: Spontaneous
  Country: DK (occurrence: DK)
  Receive Date: 20191122
  Receipt Date: 20191127
  Transmission Date: 20200122
  Serious: Yes (Other)
  Sender: FDA-Public Use
  Company Number: NVSC2019DK043773

PATIENT
  Age: 60 Year
  Sex: Male

DRUGS (1)
  1. CORDAN (AMIODARONE HYDROCHLORIDE) [Suspect]
     Active Substance: AMIODARONE HYDROCHLORIDE
     Indication: ATRIAL FIBRILLATION
     Dosage: DOSIS: DOSERING EFTER SKRIFTLIG ANVISNING. STYRKE: 200 MG.
     Route: 048
     Dates: start: 20180615, end: 20181010

REACTIONS (6)
  - Vision blurred [Recovered/Resolved]
  - Visual impairment [Not Recovered/Not Resolved]
  - Retinal haemorrhage [Recovered/Resolved]
  - Blindness transient [Recovered/Resolved]
  - Optic neuritis [Not Recovered/Not Resolved]
  - Blindness [Recovered/Resolved]

NARRATIVE: CASE EVENT DATE: 20181004
